FAERS Safety Report 25454011 (Version 2)
Quarter: 2025Q3

REPORT INFORMATION
  Report Type: Spontaneous
  Country: RU (occurrence: RU)
  Receive Date: 20250619
  Receipt Date: 20250703
  Transmission Date: 20251021
  Serious: Yes (Other)
  Sender: MERCK SHARP & DOHME LLC
  Company Number: RU-009507513-2295453

PATIENT

DRUGS (7)
  1. PEMBROLIZUMAB [Suspect]
     Active Substance: PEMBROLIZUMAB
  2. PACLITAXEL [Suspect]
     Active Substance: PACLITAXEL
     Indication: Lung carcinoma cell type unspecified stage IV
     Dosage: PACLITAXEL 200 MG / M2, Q3W
     Dates: start: 202402, end: 2024
  3. CARBOPLATIN [Suspect]
     Active Substance: CARBOPLATIN
     Indication: Lung carcinoma cell type unspecified stage IV
     Dosage: AUC6 EVERY 3 WEEKS
     Dates: start: 202402, end: 2024
  4. PEMBROLIZUMAB [Suspect]
     Active Substance: PEMBROLIZUMAB
     Indication: Lung carcinoma cell type unspecified stage IV
     Dosage: 200MG, Q3W; THE 4 COURSES OF CHEMO-IMMUNOTHERAPY WAS CARRIED OUT
     Route: 065
     Dates: start: 202402, end: 20240516
  5. PEMBROLIZUMAB [Suspect]
     Active Substance: PEMBROLIZUMAB
     Indication: Lung carcinoma cell type unspecified stage IV
     Dosage: 200MG, Q3W; THE 2ND COURSE OF MAINTENANCE
     Route: 065
     Dates: start: 20240717, end: 20240813
  6. PEMBROLIZUMAB [Suspect]
     Active Substance: PEMBROLIZUMAB
     Indication: Lung carcinoma cell type unspecified stage IV
     Dosage: 200MG, Q3W; THE 3RD-10TH COURSE OF MAINTENANCE IMMUNOTHERAPY WAS CARRIED OUT
     Route: 065
     Dates: start: 20240903, end: 20250203
  7. PEMBROLIZUMAB [Suspect]
     Active Substance: PEMBROLIZUMAB
     Indication: Lung carcinoma cell type unspecified stage IV
     Dosage: 200MG, Q3W
     Route: 065
     Dates: start: 2025

REACTIONS (9)
  - Pneumonia [Recovered/Resolved]
  - Inguinal hernia [Unknown]
  - Aortic arteriosclerosis [Unknown]
  - Tumour pseudoprogression [Unknown]
  - Skin toxicity [Unknown]
  - Weight increased [Unknown]
  - Computerised tomogram pelvis abnormal [Unknown]
  - Pulmonary calcification [Unknown]
  - Fibrosis [Unknown]

NARRATIVE: CASE EVENT DATE: 20240101
